FAERS Safety Report 5703393-8 (Version None)
Quarter: 2008Q2

REPORT INFORMATION
  Report Type: 
  Country: None (occurrence: None)
  Receive Date: 20080411
  Receipt Date: 20080331
  Transmission Date: 20081010
  Serious: Yes (Other)
  Sender: FDA-Public Use
  Company Number: FR-PFIZER INC-2008028889

PATIENT
  Sex: Male

DRUGS (2)
  1. LYRICA [Suspect]
     Indication: MUSCLE DISORDER
     Dosage: DAILY DOSE:50MG
     Dates: start: 20080118, end: 20080301
  2. COAPROVEL [Concomitant]
     Indication: HYPERTENSION

REACTIONS (2)
  - MUSCLE RUPTURE [None]
  - MYALGIA [None]
